FAERS Safety Report 9541998 (Version 3)
Quarter: 2014Q1

REPORT INFORMATION
  Report Type: Spontaneous
  Country: US (occurrence: US)
  Receive Date: 20130923
  Receipt Date: 20140218
  Transmission Date: 20141002
  Serious: Yes (Hospitalization, Other)
  Sender: FDA-Public Use
  Company Number: US-SUN PHARMACEUTICAL INDUSTRIES LTD-2013SUN04723

PATIENT
  Sex: 0

DRUGS (1)
  1. TOPIRAMATE TABS 50MG [Suspect]
     Indication: EPILEPSY
     Dosage: 50 MG, OD
     Route: 048
     Dates: start: 20130608, end: 20130618

REACTIONS (9)
  - Spinal fracture [Unknown]
  - Joint dislocation [Unknown]
  - Concussion [Unknown]
  - Upper limb fracture [Unknown]
  - Tendon injury [Unknown]
  - Migraine [Unknown]
  - Fall [Unknown]
  - Grand mal convulsion [Unknown]
  - Drug ineffective [Unknown]
